FAERS Safety Report 24678580 (Version 1)
Quarter: 2024Q4

REPORT INFORMATION
  Report Type: Spontaneous
  Country: NL (occurrence: NL)
  Receive Date: 20241129
  Receipt Date: 20241129
  Transmission Date: 20250115
  Serious: Yes (Hospitalization, Other)
  Sender: AUROBINDO
  Company Number: NL-ROCHE-3538930

PATIENT
  Age: 68 Year
  Sex: Male

DRUGS (9)
  1. PACLITAXEL [Suspect]
     Active Substance: PACLITAXEL
     Indication: Non-small cell lung cancer
     Dosage: 468 MILLIGRAM (LAST CYCLE DOSE ADMINISTERED ON 25/MAR/29024)
     Route: 042
     Dates: start: 20240325
  2. PACLITAXEL [Suspect]
     Active Substance: PACLITAXEL
     Dosage: 468 MILLIGRAM (COMPLETED 4 CYCLES BY 06/MAY/2024)
     Route: 042
     Dates: start: 20240506
  3. CARBOPLATIN [Suspect]
     Active Substance: CARBOPLATIN
     Indication: Non-small cell lung cancer
     Dosage: 870 MILLIGRAM (LAST CYCLE DOSE ADMINISTERED ON 25/MAR/2024)
     Route: 042
     Dates: start: 20240325
  4. CARBOPLATIN [Suspect]
     Active Substance: CARBOPLATIN
     Dosage: 870 MILLIGRAM (COMPLETED 4 CYCLES BY 06/MAY/2024)
     Route: 042
     Dates: start: 20240506
  5. BEVACIZUMAB [Suspect]
     Active Substance: BEVACIZUMAB
     Indication: Non-small cell lung cancer
     Dosage: 1200 MILLIGRAM
     Route: 042
     Dates: start: 20240325
  6. BEVACIZUMAB [Suspect]
     Active Substance: BEVACIZUMAB
     Dosage: 1200 MILLIGRAM (COMPLETED 7 CYCLES BY 05/AUG/2024)
     Route: 042
     Dates: start: 20240805
  7. ATEZOLIZUMAB [Suspect]
     Active Substance: ATEZOLIZUMAB
     Indication: Non-small cell lung cancer
     Dosage: 1600 MILLIGRAM (LAST CYCLE DOSE ADMINISTERED ON 25/MAR/2024)
     Route: 042
     Dates: start: 20240325
  8. ATEZOLIZUMAB [Suspect]
     Active Substance: ATEZOLIZUMAB
     Dosage: 1600 MILLIGRAM (COMPLETED 7 CYCLES BY 05/AUG/2024)
     Route: 042
     Dates: start: 20240805
  9. HYDROCORTISONE [Concomitant]
     Active Substance: HYDROCORTISONE
     Indication: Product used for unknown indication
     Route: 065

REACTIONS (4)
  - Adrenocortical insufficiency acute [Not Recovered/Not Resolved]
  - Tertiary adrenal insufficiency [Recovered/Resolved]
  - Malaise [Recovered/Resolved]
  - Pyrexia [Recovered/Resolved]

NARRATIVE: CASE EVENT DATE: 20240401
